FAERS Safety Report 15864470 (Version 3)
Quarter: 2019Q1

REPORT INFORMATION
  Report Type: Report from Study
  Country: CA (occurrence: CA)
  Receive Date: 20190124
  Receipt Date: 20190315
  Transmission Date: 20190417
  Serious: Yes (Other)
  Sender: FDA-Public Use
  Company Number: CA-SHIRE-CA201901273

PATIENT

DRUGS (3)
  1. TEDUGLUTIDE [Suspect]
     Active Substance: TEDUGLUTIDE
     Indication: SHORT-BOWEL SYNDROME
     Dosage: 2.60 MILLIGRAM, 1X/DAY:QD
     Route: 065
     Dates: start: 20180511
  2. MULTIVITAMIN [Concomitant]
     Active Substance: VITAMINS
     Indication: PRODUCT USED FOR UNKNOWN INDICATION
  3. TPN [Concomitant]
     Active Substance: AMINO ACIDS\DEXTROSE\ELECTROLYTES NOS\SOYBEAN OIL
     Indication: PRODUCT USED FOR UNKNOWN INDICATION

REACTIONS (6)
  - Gastrointestinal fistula [Not Recovered/Not Resolved]
  - Decreased appetite [Unknown]
  - Abdominal abscess [Recovered/Resolved]
  - Abdominal pain [Recovered/Resolved]
  - Disease recurrence [Recovered/Resolved]
  - Procedural complication [Unknown]
